FAERS Safety Report 6758193-7 (Version None)
Quarter: 2010Q2

REPORT INFORMATION
  Report Type: 
  Country: None (occurrence: None)
  Receive Date: 20100524
  Receipt Date: 20100402
  Transmission Date: 20101027
  Serious: No
  Sender: FDA-Public Use
  Company Number: 009807

PATIENT
  Sex: Female

DRUGS (3)
  1. CIMZIA [Suspect]
     Indication: RHEUMATOID ARTHRITIS
     Dosage: SUBCUTANEOUS
     Route: 058
     Dates: start: 20100301
  2. CORTICOSTEROIDS [Concomitant]
  3. METHOTREXATE [Concomitant]

REACTIONS (2)
  - COUGH [None]
  - LACRIMATION INCREASED [None]
